FAERS Safety Report 6129296-5 (Version None)
Quarter: 2009Q1

REPORT INFORMATION
  Report Type: 
  Country: None (occurrence: None)
  Receive Date: 20090320
  Receipt Date: 20090310
  Transmission Date: 20090719
  Serious: No
  Sender: FDA-Public Use
  Company Number: 2009-189826-NL

PATIENT
  Age: 16 Year
  Sex: Female

DRUGS (1)
  1. MIRTAZAPINE [Suspect]
     Indication: DEPRESSION
     Dosage: 30 MG, ORAL
     Route: 048
     Dates: start: 20081120, end: 20081129

REACTIONS (2)
  - HAEMOGLOBIN DECREASED [None]
  - UNEVALUABLE EVENT [None]
